FAERS Safety Report 13587286 (Version 1)
Quarter: 2017Q2

REPORT INFORMATION
  Report Type: Spontaneous
  Country: IT (occurrence: IT)
  Receive Date: 20170526
  Receipt Date: 20170526
  Transmission Date: 20170830
  Serious: Yes (Disabling)
  Sender: FDA-Public Use
  Company Number: IT-PFIZER INC-2017226401

PATIENT
  Age: 49 Year
  Weight: 85 kg

DRUGS (1)
  1. CIPROFLOXACIN HCL [Suspect]
     Active Substance: CIPROFLOXACIN HYDROCHLORIDE
     Indication: GASTROENTERITIS
     Dosage: 500 MG, DAILY
     Route: 048
     Dates: start: 20130910, end: 20130916

REACTIONS (11)
  - Neuropathy peripheral [Not Recovered/Not Resolved]
  - Nausea [Not Recovered/Not Resolved]
  - Chronic fatigue syndrome [Not Recovered/Not Resolved]
  - Feeling abnormal [Unknown]
  - Weight decreased [Not Recovered/Not Resolved]
  - Post viral fatigue syndrome [Unknown]
  - Oxygen saturation abnormal [Unknown]
  - Fibromyalgia [Not Recovered/Not Resolved]
  - Hypothalamic pituitary adrenal axis suppression [Unknown]
  - Tendonitis [Not Recovered/Not Resolved]
  - Dyspepsia [Unknown]

NARRATIVE: CASE EVENT DATE: 20130925
